FAERS Safety Report 19981710 (Version 1)
Quarter: 2021Q4

REPORT INFORMATION
  Report Type: Spontaneous
  Country: US (occurrence: US)
  Receive Date: 20211021
  Receipt Date: 20211021
  Transmission Date: 20220303
  Serious: No
  Sender: FDA-Public Use
  Company Number: US-LUPIN PHARMACEUTICALS INC.-2021-19757

PATIENT
  Sex: Male

DRUGS (2)
  1. ALBUTEROL SULFATE [Suspect]
     Active Substance: ALBUTEROL SULFATE
     Indication: Product used for unknown indication
     Dosage: UNK (2 PUFFS 4 TIMES PER DAY)
     Dates: start: 202107
  2. ALBUTEROL SULFATE [Suspect]
     Active Substance: ALBUTEROL SULFATE
     Dosage: UNK (2 PUFFS 4 TIMES PER DAY)
     Dates: start: 202107

REACTIONS (4)
  - Device occlusion [Unknown]
  - Wrong technique in device usage process [Unknown]
  - Product preparation error [Unknown]
  - No adverse event [Unknown]
